FAERS Safety Report 9365786 (Version 2)
Quarter: 2013Q3

REPORT INFORMATION
  Report Type: Spontaneous
  Country: AU (occurrence: AU)
  Receive Date: 20130625
  Receipt Date: 20130731
  Transmission Date: 20140515
  Serious: Yes (Death)
  Sender: FDA-Public Use
  Company Number: AU-B.I. PHARMACEUTICALS,INC./RIDGEFIELD-2013-AU-00740AU

PATIENT
  Age: 51 Year
  Sex: Male
  Weight: 105 kg

DRUGS (11)
  1. PRADAXA [Suspect]
     Indication: CEREBROVASCULAR ACCIDENT PROPHYLAXIS
     Dosage: 300 MG
     Dates: start: 20111013
  2. PRADAXA [Suspect]
     Indication: ATRIAL FIBRILLATION
  3. BICOR [Concomitant]
     Dosage: 10 MG
  4. DIABEX XR [Concomitant]
     Dosage: 1 G
  5. FRUSEMIDE [Concomitant]
     Dosage: 20 MG
  6. LANOXIN [Concomitant]
     Dosage: 125 MCG
  7. LIPITOR [Concomitant]
     Dosage: 20 MG
  8. NORVASC [Concomitant]
     Dosage: 5 MG
  9. OXYCONTIN [Concomitant]
     Dosage: 120 MG
  10. RAMIPRIL-GA [Concomitant]
     Dosage: 10 MG
  11. SOMAC [Concomitant]
     Dosage: 40 MG

REACTIONS (1)
  - Sudden death [Fatal]
